FAERS Safety Report 7151986-6 (Version None)
Quarter: 2010Q4

REPORT INFORMATION
  Report Type: 
  Country: None (occurrence: None)
  Receive Date: 20101211
  Receipt Date: 20101203
  Transmission Date: 20110411
  Serious: Yes (Other)
  Sender: FDA-Public Use
  Company Number: US-PFIZER INC-2010163936

PATIENT
  Age: 93 Year
  Sex: Female

DRUGS (1)
  1. MEDROL [Suspect]

REACTIONS (2)
  - ATRIAL FIBRILLATION [None]
  - FLUID RETENTION [None]
